FAERS Safety Report 9162059 (Version 1)
Quarter: 2013Q1

REPORT INFORMATION
  Report Type: Spontaneous
  Country: US (occurrence: None)
  Receive Date: 20130220
  Receipt Date: 20130220
  Transmission Date: 20140127
  Serious: Yes (Other)
  Sender: FDA-Public Use
  Company Number: ABR_00827_2013

PATIENT
  Age: 81 Year
  Sex: Male

DRUGS (1)
  1. ERYTHROMYCIN ETHYLSUCCINATE [Suspect]
     Indication: PRODUCT USED FOR UNKNOWN INDICATION
     Dosage: (7 G [RECIEVED A TOTAL OF 7 G] ORAL)
     Route: 048

REACTIONS (2)
  - Deafness [None]
  - Ototoxicity [None]
